FAERS Safety Report 26110193 (Version 1)
Quarter: 2025Q4

REPORT INFORMATION
  Report Type: Spontaneous
  Country: US (occurrence: US)
  Receive Date: 20251202
  Receipt Date: 20251202
  Transmission Date: 20260117
  Serious: No
  Sender: AMGEN
  Company Number: US-AMGEN-USASP2025234603

PATIENT
  Age: 69 Year
  Sex: Female

DRUGS (1)
  1. IMLYGIC [Suspect]
     Active Substance: TALIMOGENE LAHERPAREPVEC
     Indication: Malignant melanoma
     Dosage: UNK, 10^8 (100 MILLION) PFU PER ML
     Route: 065

REACTIONS (2)
  - Product storage error [Unknown]
  - Illness [Unknown]

NARRATIVE: CASE EVENT DATE: 20251114
